FAERS Safety Report 11437136 (Version 1)
Quarter: 2015Q3

REPORT INFORMATION
  Report Type: Report from Study
  Country: BR (occurrence: BR)
  Receive Date: 20150831
  Receipt Date: 20150831
  Transmission Date: 20151125
  Serious: Yes (Hospitalization)
  Sender: FDA-Public Use
  Company Number: BR-BAYER-2015-407041

PATIENT
  Sex: Female
  Weight: 72.1 kg

DRUGS (9)
  1. REGORAFENIB [Suspect]
     Active Substance: REGORAFENIB
     Indication: COLORECTAL CANCER
     Dosage: 160 MG, QD
     Route: 048
     Dates: start: 20150807
  2. SELOZOK [Concomitant]
     Active Substance: METOPROLOL SUCCINATE
     Indication: EXTRASYSTOLES
     Dosage: 50 MG, QD
     Route: 048
     Dates: start: 201412
  3. SUMATRIPTAN. [Concomitant]
     Active Substance: SUMATRIPTAN
     Indication: MIGRAINE
     Dosage: 100 MG, QD
     Route: 048
     Dates: start: 2013
  4. OMEPRAZOLE. [Concomitant]
     Active Substance: OMEPRAZOLE
     Indication: PROPHYLAXIS
     Dosage: 40 MG, QD
     Route: 048
     Dates: start: 201412
  5. CODEINE [Concomitant]
     Active Substance: CODEINE
     Indication: PAIN
     Dosage: 60 MG, QD
     Route: 048
     Dates: start: 2014
  6. PARACETAMOL [Concomitant]
     Active Substance: ACETAMINOPHEN
     Indication: PAIN
     Dosage: 2000 MG, QD
     Route: 048
  7. BISACODYL. [Concomitant]
     Active Substance: BISACODYL
     Indication: CONSTIPATION
     Dosage: 5 MG, QD
     Route: 048
     Dates: start: 20150812
  8. LORATADINE. [Concomitant]
     Active Substance: LORATADINE
     Indication: DRUG HYPERSENSITIVITY
     Dosage: 10 MG, QD
     Route: 048
     Dates: start: 2014
  9. FENTANYL. [Concomitant]
     Active Substance: FENTANYL
     Indication: PAIN
     Dosage: 50 ?G, UNK
     Route: 062
     Dates: start: 201501

REACTIONS (1)
  - Sepsis [Not Recovered/Not Resolved]

NARRATIVE: CASE EVENT DATE: 20150814
